FAERS Safety Report 8984645 (Version 1)
Quarter: 2012Q4

REPORT INFORMATION
  Report Type: 
  Country: US (occurrence: US)
  Receive Date: 20121225
  Receipt Date: 20121225
  Transmission Date: 20130627
  Serious: No
  Sender: FDA-Public Use
  Company Number: US-ASTRAZENECA-2012SE92372

PATIENT
  Age: 50 Year
  Sex: Female
  Weight: 56.7 kg

DRUGS (11)
  1. SYMBICORT [Suspect]
     Indication: CHRONIC OBSTRUCTIVE PULMONARY DISEASE
     Dosage: 160/4.5MCG, TWO PUFFS TWICE DAILY
     Route: 055
     Dates: start: 201207
  2. LISINOPRIL [Suspect]
     Indication: HYPERTENSION
     Route: 048
  3. ROSUVASTATIN [Suspect]
     Indication: BLOOD CHOLESTEROL ABNORMAL
     Route: 048
  4. IPATROPIUM [Concomitant]
  5. PROVENTIL [Concomitant]
     Indication: CHRONIC OBSTRUCTIVE PULMONARY DISEASE
     Route: 055
  6. DICLOFENAC EC [Concomitant]
  7. CITALOPRAM [Concomitant]
  8. NAPROXYN [Concomitant]
  9. LORAZADINE [Concomitant]
  10. FLUTICASONE [Concomitant]
  11. RANITIDINE [Concomitant]

REACTIONS (4)
  - Bacterial infection [Unknown]
  - Throat irritation [Not Recovered/Not Resolved]
  - Oropharyngeal pain [Not Recovered/Not Resolved]
  - Urticaria [Not Recovered/Not Resolved]
